FAERS Safety Report 7772845-1 (Version None)
Quarter: 2011Q3

REPORT INFORMATION
  Report Type: 
  Country: None (occurrence: None)
  Receive Date: 20110922
  Receipt Date: 20101005
  Transmission Date: 20111222
  Serious: No
  Sender: FDA-Public Use
  Company Number: US-ASTRAZENECA-2010SE47193

PATIENT
  Age: 690 Month
  Sex: Female
  Weight: 86.2 kg

DRUGS (1)
  1. SEROQUEL XR [Suspect]
     Route: 048
     Dates: start: 20100301, end: 20100914

REACTIONS (5)
  - IRRITABILITY [None]
  - DRUG DOSE OMISSION [None]
  - INSOMNIA [None]
  - THINKING ABNORMAL [None]
  - DIZZINESS [None]
